FAERS Safety Report 7619286-5 (Version None)
Quarter: 2011Q3

REPORT INFORMATION
  Report Type: 
  Country: None (occurrence: None)
  Receive Date: 20110718
  Receipt Date: 20110713
  Transmission Date: 20111222
  Serious: No
  Sender: FDA-Public Use
  Company Number: US-B.I. PHARMACEUTICALS,INC./RIDGEFIELD-2011-BP-07953BP

PATIENT
  Age: 77 Year
  Sex: Female
  Weight: 84.37 kg

DRUGS (5)
  1. ASPIRIN [Concomitant]
     Dosage: 81 MG
  2. PROCARDIA [Concomitant]
     Indication: HYPERTENSION
     Dosage: 30 MG
     Route: 048
     Dates: start: 20070101
  3. HYDROCHLOROTHIAZIDE [Concomitant]
     Dosage: 12.5 MG
  4. ZOCOR [Concomitant]
     Dosage: 20 MG
  5. PRADAXA [Suspect]
     Indication: ATRIAL FIBRILLATION
     Dosage: 300 MG
     Route: 048
     Dates: start: 20110201

REACTIONS (3)
  - WEIGHT INCREASED [None]
  - ANXIETY [None]
  - ASTHENIA [None]
